FAERS Safety Report 8495625-0 (Version None)
Quarter: 2012Q2

REPORT INFORMATION
  Report Type: 
  Country: None (occurrence: None)
  Receive Date: 20120403
  Receipt Date: 20110214
  Transmission Date: 20120825
  Serious: Yes (Other)
  Sender: FDA-Public Use
  Company Number: -0211-20

PATIENT
  Sex: Male

DRUGS (4)
  1. DERMA-SMOOTHE/FS SCALP OIL  HILL DERMACEUTICALS [Suspect]
     Dosage: TOPICAL
     Route: 061
  2. ELIDEL [Concomitant]
  3. CLINDAMYCIN [Concomitant]
  4. NIZORAL [Concomitant]

REACTIONS (2)
  - INSOMNIA [None]
  - FURUNCLE [None]
